FAERS Safety Report 4606143-1 (Version None)
Quarter: 2005Q1

REPORT INFORMATION
  Report Type: 
  Country: None (occurrence: None)
  Receive Date: 20050309
  Receipt Date: 20050224
  Transmission Date: 20050727
  Serious: Yes (Disabling, Other)
  Sender: FDA-Public Use
  Company Number: 2005037991

PATIENT
  Sex: Male
  Weight: 97.5234 kg

DRUGS (2)
  1. XANAX XR [Suspect]
     Indication: ANXIETY
     Dosage: 1 MG (1 MG, EVERY NIGHT), ORAL
     Route: 048
     Dates: start: 20050201
  2. XANAX [Suspect]
     Indication: ANXIETY
     Dosage: ORAL
     Route: 048

REACTIONS (18)
  - ANXIETY [None]
  - ARTHRALGIA [None]
  - BURNING SENSATION [None]
  - DIARRHOEA [None]
  - DISEASE RECURRENCE [None]
  - DRUG INEFFECTIVE [None]
  - FACE INJURY [None]
  - HEAD INJURY [None]
  - HEADACHE [None]
  - HYPERHIDROSIS [None]
  - INSOMNIA [None]
  - OEDEMA PERIPHERAL [None]
  - POST-TRAUMATIC STRESS DISORDER [None]
  - SLEEP DISORDER [None]
  - TYMPANIC MEMBRANE PERFORATION [None]
  - URINE OUTPUT INCREASED [None]
  - VICTIM OF CRIME [None]
  - VISION BLURRED [None]
